FAERS Safety Report 7707278-7 (Version None)
Quarter: 2011Q3

REPORT INFORMATION
  Report Type: 
  Country: None (occurrence: None)
  Receive Date: 20110824
  Receipt Date: 20110816
  Transmission Date: 20111222
  Serious: Yes (Other)
  Sender: FDA-Public Use
  Company Number: PHHY2011DE74490

PATIENT
  Age: 67 Year
  Sex: Male

DRUGS (2)
  1. RASILEZ [Suspect]
     Dosage: 300 MG/DAY
     Dates: start: 20110401, end: 20110815
  2. RASILEZ [Suspect]
     Indication: HYPERTENSION
     Dosage: 150 MG/DAY
     Dates: start: 20100101, end: 20110401

REACTIONS (2)
  - NASAL CONGESTION [None]
  - SLEEP APNOEA SYNDROME [None]
